FAERS Safety Report 5951187-0 (Version None)
Quarter: 2008Q4

REPORT INFORMATION
  Report Type: 
  Country: None (occurrence: None)
  Receive Date: 20081112
  Receipt Date: 20081112
  Transmission Date: 20090506
  Serious: Yes (Other)
  Sender: FDA-Public Use
  Company Number: None

PATIENT
  Age: 66 Year
  Sex: Female
  Weight: 68.0396 kg

DRUGS (2)
  1. CLONAZEPAM [Suspect]
     Indication: ANXIETY
     Dosage: 1 MG TWICE A DAY PO
     Route: 048
  2. CLONAZEPAM [Suspect]
     Indication: POST-TRAUMATIC STRESS DISORDER
     Dosage: 1 MG TWICE A DAY PO
     Route: 048

REACTIONS (7)
  - CONSTIPATION [None]
  - DEPRESSION SUICIDAL [None]
  - DRUG WITHDRAWAL SYNDROME [None]
  - HYPERHIDROSIS [None]
  - INITIAL INSOMNIA [None]
  - INSOMNIA [None]
  - MENTAL IMPAIRMENT [None]
